FAERS Safety Report 17923054 (Version 1)
Quarter: 2020Q2

REPORT INFORMATION
  Report Type: Spontaneous
  Country: US (occurrence: US)
  Receive Date: 20200621
  Receipt Date: 20200621
  Transmission Date: 20200714
  Serious: Yes (Life-Threatening, Hospitalization, Disabling)
  Sender: FDA-Public Use
  Company Number: None

PATIENT
  Age: 21 Year
  Sex: Male

DRUGS (1)
  1. ZOLOFT [Suspect]
     Active Substance: SERTRALINE HYDROCHLORIDE

REACTIONS (7)
  - Withdrawal syndrome [None]
  - Burning sensation [None]
  - Suicidal ideation [None]
  - Anxiety [None]
  - Headache [None]
  - Prescribed overdose [None]
  - Depression [None]

NARRATIVE: CASE EVENT DATE: 20200101
